FAERS Safety Report 5112495-9 (Version None)
Quarter: 2006Q3

REPORT INFORMATION
  Report Type: 
  Country: None (occurrence: None)
  Receive Date: 20060920
  Receipt Date: 20060920
  Transmission Date: 20061208
  Serious: Yes (Other)
  Sender: FDA-Public Use
  Company Number: None

PATIENT
  Sex: Female
  Weight: 81.6475 kg

DRUGS (2)
  1. EFFEXOR XR [Suspect]
     Indication: ANXIETY
     Dosage: 225 MG  DAILY  PO
     Route: 048
     Dates: start: 20040701, end: 20060914
  2. EFFEXOR XR [Suspect]
     Indication: DEPRESSION
     Dosage: 225 MG  DAILY  PO
     Route: 048
     Dates: start: 20040701, end: 20060914

REACTIONS (5)
  - ANXIETY [None]
  - CONDITION AGGRAVATED [None]
  - DEPRESSION [None]
  - DRUG WITHDRAWAL SYNDROME [None]
  - PSYCHOMOTOR SKILLS IMPAIRED [None]
